FAERS Safety Report 14587149 (Version 2)
Quarter: 2018Q1

REPORT INFORMATION
  Report Type: Report from Study
  Country: JP (occurrence: JP)
  Receive Date: 20180301
  Receipt Date: 20180315
  Transmission Date: 20180509
  Serious: Yes (Other)
  Sender: FDA-Public Use
  Company Number: JP-ACTELION-A-CH2018-168243

PATIENT
  Age: 11 Year
  Sex: Male

DRUGS (10)
  1. ALDACTONE A [Concomitant]
     Active Substance: SPIRONOLACTONE
  2. OPSUMIT [Suspect]
     Active Substance: MACITENTAN
     Indication: PULMONARY ARTERIAL HYPERTENSION
     Dosage: 4.8 MG, OD
     Route: 048
     Dates: start: 20171021
  3. ADCIRCA [Concomitant]
     Active Substance: TADALAFIL
  4. OXYGEN. [Concomitant]
     Active Substance: OXYGEN
  5. FUROSEMIDE. [Concomitant]
     Active Substance: FUROSEMIDE
  6. WARFARIN [Concomitant]
     Active Substance: WARFARIN
  7. ARTIST [Concomitant]
     Active Substance: CARVEDILOL
  8. ENALAPRIL [Concomitant]
     Active Substance: ENALAPRIL
  9. ASPIRIN. [Concomitant]
     Active Substance: ASPIRIN
  10. SAMSCA [Concomitant]
     Active Substance: TOLVAPTAN

REACTIONS (2)
  - Anaemia [Not Recovered/Not Resolved]
  - Transfusion [Unknown]

NARRATIVE: CASE EVENT DATE: 20171028
